FAERS Safety Report 7558417-2 (Version None)
Quarter: 2011Q2

REPORT INFORMATION
  Report Type: 
  Country: None (occurrence: None)
  Receive Date: 20110620
  Receipt Date: 20110610
  Transmission Date: 20111010
  Serious: Yes (Other)
  Sender: FDA-Public Use
  Company Number: PHHY2011DE52255

PATIENT
  Age: 74 Year
  Sex: Male

DRUGS (3)
  1. CORTISONE [Concomitant]
  2. CHEMOTHERAPEUTICS NOS [Concomitant]
  3. ZOMETA [Suspect]

REACTIONS (3)
  - OSTEONECROSIS OF JAW [None]
  - FRACTURE [None]
  - FISTULA [None]
